FAERS Safety Report 7572060-0 (Version None)
Quarter: 2011Q2

REPORT INFORMATION
  Report Type: 
  Country: None (occurrence: None)
  Receive Date: 20110624
  Receipt Date: 20110613
  Transmission Date: 20111010
  Serious: Yes (Hospitalization, Other)
  Sender: FDA-Public Use
  Company Number: JP-JNJFOC-20110608549

PATIENT
  Age: 58 Year
  Sex: Male

DRUGS (8)
  1. SELBEX [Concomitant]
     Route: 048
  2. LIMAS [Concomitant]
     Route: 048
  3. MARZULENE [Concomitant]
     Route: 048
  4. GALANTAMINE HYDROBROMIDE [Suspect]
     Indication: DEMENTIA ALZHEIMER'S TYPE
     Route: 048
     Dates: start: 20110531, end: 20110613
  5. DONEPEZIL HCL [Suspect]
     Indication: PRODUCT USED FOR UNKNOWN INDICATION
     Route: 065
     Dates: start: 20100301
  6. DAI-KENCHU-TO [Concomitant]
     Route: 048
  7. JUVELA [Concomitant]
     Route: 048
  8. CYMBALTA [Concomitant]
     Route: 048

REACTIONS (4)
  - BLOOD CREATINE PHOSPHOKINASE INCREASED [None]
  - HEPATIC FUNCTION ABNORMAL [None]
  - PSYCHOMOTOR HYPERACTIVITY [None]
  - INSOMNIA [None]
